FAERS Safety Report 7763088-6 (Version None)
Quarter: 2011Q3

REPORT INFORMATION
  Report Type: 
  Country: None (occurrence: None)
  Receive Date: 20110920
  Receipt Date: 20100830
  Transmission Date: 20111222
  Serious: No
  Sender: FDA-Public Use
  Company Number: US-BAUSCH-2010BL004864

PATIENT
  Age: 62 Year
  Sex: Male

DRUGS (1)
  1. ERYTHROCIN 1% [Suspect]
     Indication: EYELID INFECTION
     Route: 047
     Dates: start: 20100719, end: 20100723

REACTIONS (2)
  - DIPLOPIA [None]
  - VISION BLURRED [None]
